FAERS Safety Report 23718824 (Version 1)
Quarter: 2024Q2

REPORT INFORMATION
  Report Type: Spontaneous
  Country: US (occurrence: None)
  Receive Date: 20240408
  Receipt Date: 20240408
  Transmission Date: 20240717
  Serious: No
  Sender: FDA-Public Use
  Company Number: None

PATIENT
  Age: 46 Year
  Sex: Female
  Weight: 36.29 kg

DRUGS (1)
  1. COSENTYX [Suspect]
     Active Substance: SECUKINUMAB
     Indication: Hidradenitis
     Dosage: OTHER FREQUENCY : WK FOR WK 2, 3;?
     Route: 058
     Dates: start: 202404

REACTIONS (2)
  - Oropharyngeal pain [None]
  - Pollakiuria [None]
